FAERS Safety Report 8169716-8 (Version None)
Quarter: 2012Q1

REPORT INFORMATION
  Report Type: 
  Country: None (occurrence: None)
  Receive Date: 20120228
  Receipt Date: 20120222
  Transmission Date: 20120608
  Serious: Yes (Death, Hospitalization)
  Sender: FDA-Public Use
  Company Number: DE-JNJFOC-20120210545

PATIENT
  Age: 85 Year
  Sex: Male

DRUGS (21)
  1. RISPERDAL [Suspect]
     Indication: PRODUCT USED FOR UNKNOWN INDICATION
     Route: 048
     Dates: end: 20110730
  2. EMBOLEX [Concomitant]
     Route: 048
     Dates: start: 20110717, end: 20110805
  3. OXAZEPAM [Concomitant]
     Route: 048
     Dates: start: 20110804, end: 20110805
  4. DIPIDOLOR [Suspect]
     Indication: PRODUCT USED FOR UNKNOWN INDICATION
     Route: 048
     Dates: start: 20110804
  5. SEROQUEL [Suspect]
     Indication: PRODUCT USED FOR UNKNOWN INDICATION
     Route: 048
     Dates: start: 20110724, end: 20110803
  6. SEROQUEL [Suspect]
     Route: 048
     Dates: start: 20110804, end: 20110804
  7. PANTOPRAZOLE [Concomitant]
     Route: 048
     Dates: start: 20110727, end: 20110805
  8. FUROSEMIDE [Concomitant]
     Route: 048
     Dates: start: 20110722, end: 20110805
  9. FUROSEMIDE [Concomitant]
     Route: 048
     Dates: start: 20110715, end: 20110717
  10. HALDOL [Suspect]
     Indication: PRODUCT USED FOR UNKNOWN INDICATION
     Route: 048
     Dates: start: 20110730, end: 20110805
  11. SEROQUEL [Suspect]
     Route: 048
     Dates: start: 20110723, end: 20110723
  12. METOPROLOL TARTRATE [Concomitant]
     Route: 048
     Dates: end: 20110804
  13. DIPIDOLOR [Suspect]
     Route: 048
     Dates: start: 20110721, end: 20110727
  14. SEROQUEL [Suspect]
     Route: 048
     Dates: start: 20110805, end: 20110805
  15. FUROSEMIDE [Concomitant]
     Route: 048
     Dates: start: 20110718, end: 20110721
  16. VOLTAREN [Concomitant]
     Route: 048
     Dates: start: 20110727, end: 20110805
  17. OXAZEPAM [Concomitant]
     Route: 048
     Dates: start: 20110725, end: 20110729
  18. SEROQUEL [Suspect]
     Route: 048
     Dates: start: 20110722, end: 20110722
  19. OXAZEPAM [Concomitant]
     Route: 048
     Dates: start: 20110730, end: 20110803
  20. ASPIRIN [Concomitant]
     Route: 048
     Dates: end: 20110805
  21. BERODUAL [Concomitant]
     Route: 048
     Dates: start: 20110718, end: 20110805

REACTIONS (4)
  - BUNDLE BRANCH BLOCK LEFT [None]
  - RESTLESSNESS [None]
  - DEATH [None]
  - PAIN [None]
